FAERS Safety Report 5598660-5 (Version None)
Quarter: 2008Q1

REPORT INFORMATION
  Report Type: 
  Country: None (occurrence: None)
  Receive Date: 20080122
  Receipt Date: 20080109
  Transmission Date: 20080703
  Serious: Yes (Other)
  Sender: FDA-Public Use
  Company Number: GB-BRISTOL-MYERS SQUIBB COMPANY-14039267

PATIENT

DRUGS (1)
  1. ERBITUX [Suspect]

REACTIONS (2)
  - ASCITES [None]
  - PLEURAL EFFUSION [None]
